FAERS Safety Report 9073182 (Version 1)
Quarter: 2013Q1

REPORT INFORMATION
  Report Type: Report from Study
  Country: US (occurrence: US)
  Receive Date: 20130129
  Receipt Date: 20130129
  Transmission Date: 20140127
  Serious: No
  Sender: FDA-Public Use
  Company Number: US-ABBOTT-12P-163-0932055-00

PATIENT
  Age: 71 Year
  Sex: Female

DRUGS (24)
  1. HUMIRA 40 MG/0.8 ML PEN [Suspect]
     Indication: RHEUMATOID ARTHRITIS
     Dates: start: 20120502
  2. FENTANYL [Concomitant]
     Indication: PRODUCT USED FOR UNKNOWN INDICATION
     Dosage: PATCH
  3. LORTAB [Concomitant]
     Indication: PRODUCT USED FOR UNKNOWN INDICATION
     Dosage: 7.5/500MG AS NEEDED
  4. ROBAXIN [Concomitant]
     Indication: PRODUCT USED FOR UNKNOWN INDICATION
  5. LYRICA [Concomitant]
     Indication: PAIN
  6. LYRICA [Concomitant]
     Indication: NEURALGIA
  7. LYRICA [Concomitant]
     Indication: OSTEOPOROSIS
  8. NEXIUM [Concomitant]
     Indication: ABDOMINAL DISCOMFORT
     Dosage: 40MG DAILY
  9. ZYRTEC [Concomitant]
     Indication: PRODUCT USED FOR UNKNOWN INDICATION
  10. FLONASE [Concomitant]
     Indication: PRODUCT USED FOR UNKNOWN INDICATION
     Dosage: 2 SPRAYS EACH NOSTRIL DAILY
  11. PATANOL [Concomitant]
     Indication: HYPERSENSITIVITY
     Dosage: EYE DROPS
  12. SYNTHROID [Concomitant]
     Indication: HYPOTHYROIDISM
  13. RESTASIS [Concomitant]
     Indication: PRODUCT USED FOR UNKNOWN INDICATION
  14. TRAZODONE [Concomitant]
     Indication: PRODUCT USED FOR UNKNOWN INDICATION
  15. IRON [Concomitant]
     Indication: MINERAL SUPPLEMENTATION
  16. MAGNESIUM [Concomitant]
     Indication: MINERAL SUPPLEMENTATION
  17. PRENATAL VITAMINS [Concomitant]
     Indication: VITAMIN SUPPLEMENTATION
  18. UROCIT-K [Concomitant]
     Indication: MINERAL SUPPLEMENTATION
  19. VITAMIN D [Concomitant]
     Indication: VITAMIN SUPPLEMENTATION
  20. CALCIUM CITRATE [Concomitant]
     Indication: MINERAL SUPPLEMENTATION
  21. IRON+C [Concomitant]
     Indication: VITAMIN SUPPLEMENTATION
  22. VITAMIN A [Concomitant]
     Indication: VITAMIN SUPPLEMENTATION
  23. VITAMIN C [Concomitant]
     Indication: VITAMIN SUPPLEMENTATION
  24. D3 [Concomitant]
     Indication: VITAMIN SUPPLEMENTATION

REACTIONS (1)
  - Injection site pain [Recovered/Resolved]
